FAERS Safety Report 6504206-7 (Version None)
Quarter: 2009Q4

REPORT INFORMATION
  Report Type: 
  Country: None (occurrence: None)
  Receive Date: 20091217
  Receipt Date: 20091217
  Transmission Date: 20100525
  Serious: Yes (Hospitalization, Other)
  Sender: FDA-Public Use
  Company Number: PHHO2004US12290

PATIENT
  Sex: Male
  Weight: 90.5 kg

DRUGS (8)
  1. PLACEBO PLACEBO [Suspect]
     Dosage: LEVEL 1
     Route: 048
     Dates: start: 20030805
  2. PLACEBO PLACEBO [Suspect]
     Dosage: LEVEL 2
     Route: 048
  3. DIOVAN T30230+CAPS [Suspect]
     Indication: CARDIOVASCULAR DISORDER
     Dosage: LEVEL 1
     Route: 048
     Dates: start: 20030805
  4. DIOVAN T30230+CAPS [Suspect]
     Dosage: LEVEL 2
     Route: 048
  5. DIOVAN T30230+CAPS [Suspect]
     Dosage: LEVEL 1
     Route: 048
  6. LIPITOR [Concomitant]
  7. TOPROL-XL [Concomitant]
  8. FESOFOR [Concomitant]

REACTIONS (10)
  - ANGINA PECTORIS [None]
  - BUNDLE BRANCH BLOCK LEFT [None]
  - CARDIAC FAILURE CONGESTIVE [None]
  - CONGESTIVE CARDIOMYOPATHY [None]
  - DISEASE PROGRESSION [None]
  - DRUG INEFFECTIVE [None]
  - DYSPNOEA [None]
  - IMPLANTABLE DEFIBRILLATOR INSERTION [None]
  - LEFT VENTRICULAR DYSFUNCTION [None]
  - OEDEMA PERIPHERAL [None]
